FAERS Safety Report 5898962-9 (Version None)
Quarter: 2008Q3

REPORT INFORMATION
  Report Type: 
  Country: None (occurrence: None)
  Receive Date: 20080925
  Receipt Date: 20080917
  Transmission Date: 20090109
  Serious: Yes (Other)
  Sender: FDA-Public Use
  Company Number: JP-PFIZER INC-2008076795

PATIENT
  Sex: Female

DRUGS (7)
  1. ATARAX [Suspect]
     Indication: ANXIETY
     Route: 048
     Dates: start: 20080905
  2. CIBENOL [Suspect]
     Indication: ATRIAL TACHYCARDIA
     Route: 048
     Dates: start: 20080319, end: 20080910
  3. CIBENOL [Suspect]
     Indication: ATRIAL FIBRILLATION
  4. NORVASC [Concomitant]
     Route: 048
     Dates: start: 19980410
  5. ALFAROL [Concomitant]
     Route: 048
     Dates: start: 20001202
  6. GASMOTIN [Concomitant]
     Route: 048
     Dates: start: 20001202
  7. FRANDOL [Concomitant]
     Route: 062
     Dates: start: 20001202

REACTIONS (1)
  - ATRIOVENTRICULAR BLOCK SECOND DEGREE [None]
